FAERS Safety Report 10785725 (Version 1)
Quarter: 2015Q1

REPORT INFORMATION
  Report Type: Spontaneous
  Country: US (occurrence: US)
  Receive Date: 20150211
  Receipt Date: 20150211
  Transmission Date: 20150721
  Serious: Yes (Hospitalization, Other)
  Sender: FDA-Public Use
  Company Number: US-NOVOPROD-437792

PATIENT
  Age: 48 Year
  Sex: Male
  Weight: 58.96 kg

DRUGS (1)
  1. NOVOLOG [Suspect]
     Active Substance: INSULIN ASPART
     Indication: TYPE 1 DIABETES MELLITUS
     Route: 058
     Dates: start: 201310, end: 20141101

REACTIONS (7)
  - Renal failure [Recovered/Resolved]
  - Diabetic hyperglycaemic coma [Recovered/Resolved]
  - Liver disorder [Recovered/Resolved]
  - CD4 lymphocytes decreased [Unknown]
  - Drug dose omission [Recovered/Resolved]
  - Diabetic neuropathy [Not Recovered/Not Resolved]
  - Pneumonia [Recovered/Resolved]

NARRATIVE: CASE EVENT DATE: 2014
